FAERS Safety Report 4596222-X (Version None)
Quarter: 2005Q1

REPORT INFORMATION
  Report Type: 
  Country: None (occurrence: None)
  Receive Date: 20050302
  Receipt Date: 20050216
  Transmission Date: 20050727
  Serious: Yes (Other)
  Sender: FDA-Public Use
  Company Number: US-GLAXOSMITHKLINE-A0545883A

PATIENT
  Age: 73 Year
  Sex: Female
  Weight: 59 kg

DRUGS (2)
  1. COMMIT [Suspect]
     Indication: SMOKING CESSATION THERAPY
     Route: 002
     Dates: start: 20030101
  2. PRILOSEC [Concomitant]

REACTIONS (5)
  - ANXIETY [None]
  - DEPENDENCE [None]
  - DRUG ABUSER [None]
  - HYPERTENSION [None]
  - NICOTINE DEPENDENCE [None]
